FAERS Safety Report 10809939 (Version 1)
Quarter: 2015Q1

REPORT INFORMATION
  Report Type: Spontaneous
  Country: US (occurrence: None)
  Receive Date: 20150212
  Receipt Date: 20150212
  Transmission Date: 20150721
  Serious: Yes (Hospitalization)
  Sender: FDA-Public Use
  Company Number: None

PATIENT
  Age: 71 Year
  Sex: Male
  Weight: 96.8 kg

DRUGS (5)
  1. HYDROCHLOROTHIAZIDE. [Concomitant]
     Active Substance: HYDROCHLOROTHIAZIDE
  2. ASPIRIN. [Concomitant]
     Active Substance: ASPIRIN
  3. TRANDOLAPRIL. [Suspect]
     Active Substance: TRANDOLAPRIL
     Indication: HYPERTENSION
     Dosage: 1 BID ORAL
     Route: 048
     Dates: start: 20141204, end: 20141225
  4. KLOR-CON [Concomitant]
     Active Substance: POTASSIUM CHLORIDE
  5. CRESTOR [Concomitant]
     Active Substance: ROSUVASTATIN CALCIUM

REACTIONS (1)
  - Pancreatitis [None]

NARRATIVE: CASE EVENT DATE: 20141225
